FAERS Safety Report 5199127-9 (Version None)
Quarter: 2006Q4

REPORT INFORMATION
  Report Type: 
  Country: None (occurrence: None)
  Receive Date: 20061016
  Receipt Date: 20060622
  Transmission Date: 20070319
  Serious: No
  Sender: FDA-Public Use
  Company Number: 2006SP002231

PATIENT
  Age: 85 Year
  Sex: Female
  Weight: 57.1532 kg

DRUGS (7)
  1. LUNESTA [Suspect]
     Dosage: 2 MG;ORAL
     Route: 048
     Dates: start: 20060501, end: 20060501
  2. ZETIA [Concomitant]
  3. ATACAND [Concomitant]
  4. NEURONTIN [Concomitant]
  5. REQUIP [Concomitant]
  6. KLONOPIN [Concomitant]
  7. SONATA [Concomitant]

REACTIONS (1)
  - PARADOXICAL DRUG REACTION [None]
